FAERS Safety Report 12865909 (Version 1)
Quarter: 2016Q4

REPORT INFORMATION
  Report Type: Spontaneous
  Country: US (occurrence: US)
  Receive Date: 20161020
  Receipt Date: 20161020
  Transmission Date: 20170207
  Serious: No
  Sender: FDA-Public Use
  Company Number: US-MEDA-2016100058

PATIENT
  Age: 93 Year
  Sex: Male
  Weight: 82 kg

DRUGS (1)
  1. MUSE [Suspect]
     Active Substance: ALPROSTADIL
     Indication: ERECTILE DYSFUNCTION
     Route: 066
     Dates: start: 201601

REACTIONS (2)
  - Urethral haemorrhage [Recovered/Resolved]
  - Urethral injury [Unknown]

NARRATIVE: CASE EVENT DATE: 20161010
